FAERS Safety Report 5499189-5 (Version None)
Quarter: 2007Q4

REPORT INFORMATION
  Report Type: 
  Country: None (occurrence: None)
  Receive Date: 20071026
  Receipt Date: 20071024
  Transmission Date: 20080405
  Serious: Yes (Life-Threatening, Hospitalization)
  Sender: FDA-Public Use
  Company Number: DE-BRISTOL-MYERS SQUIBB COMPANY-13954789

PATIENT
  Age: 54 Year
  Sex: Female
  Weight: 48 kg

DRUGS (16)
  1. CISPLATIN [Suspect]
     Indication: OROPHARYNGEAL CANCER STAGE UNSPECIFIED
     Dosage: 75 MG/M 2
     Dates: start: 20070920
  2. PEMETREXED DISODIUM [Suspect]
     Indication: OROPHARYNGEAL CANCER STAGE UNSPECIFIED
     Dates: start: 20070920
  3. FOLIC ACID [Concomitant]
  4. VITAMIN B-12 [Concomitant]
  5. AVELOX [Concomitant]
     Indication: C-REACTIVE PROTEIN INCREASED
     Dates: start: 20071008
  6. XIMOVAN [Concomitant]
     Indication: INSOMNIA
  7. NOVALGIN [Concomitant]
  8. KEVATRIL [Concomitant]
  9. ACC [Concomitant]
  10. PASPERTIN [Concomitant]
  11. BISOPROLOL FUMARATE [Concomitant]
     Indication: HYPERTENSION
  12. RAMIPRIL [Concomitant]
     Indication: HYPERTENSION
  13. CITALOPRAM [Concomitant]
     Indication: DEPRESSION
  14. SODIUM CHLORIDE [Concomitant]
     Indication: HYPONATRAEMIA
     Dates: start: 20071005
  15. CLEXANE [Concomitant]
     Indication: THROMBOSIS
     Dates: start: 20071010
  16. SUPRARENIN INJ [Concomitant]
     Indication: RESPIRATORY DISORDER
     Dates: start: 20071012

REACTIONS (5)
  - GASTRIC ULCER PERFORATION [None]
  - GENERAL PHYSICAL HEALTH DETERIORATION [None]
  - HYPONATRAEMIA [None]
  - LARYNGEAL OEDEMA [None]
  - LUNG INFILTRATION [None]
